FAERS Safety Report 5447736-1 (Version None)
Quarter: 2007Q3

REPORT INFORMATION
  Report Type: 
  Country: None (occurrence: None)
  Receive Date: 20070910
  Receipt Date: 20070827
  Transmission Date: 20080115
  Serious: Yes (Hospitalization, Other)
  Sender: FDA-Public Use
  Company Number: IN-ELI_LILLY_AND_COMPANY-IN200708006257

PATIENT
  Age: 65 Year
  Sex: Female

DRUGS (4)
  1. FORTEO [Suspect]
     Indication: OSTEOPOROSIS
     Dosage: 20 UG, DAILY (1/D)
     Route: 058
     Dates: start: 20070427, end: 20070101
  2. FORTEO [Suspect]
     Dosage: UNK, UNK
     Dates: start: 20070101
  3. MONOTRATE [Concomitant]
     Indication: CARDIAC DISORDER
     Dosage: 20 MG, 2/D
     Route: 065
  4. CARDACE [Concomitant]
     Indication: BLOOD PRESSURE MANAGEMENT
     Dosage: 5 MG, 2/D
     Route: 065

REACTIONS (4)
  - APHASIA [None]
  - BLOOD SODIUM ABNORMAL [None]
  - HYPOKALAEMIA [None]
  - MUSCULAR WEAKNESS [None]
